FAERS Safety Report 24588678 (Version 1)
Quarter: 2024Q4

REPORT INFORMATION
  Report Type: Spontaneous
  Country: US (occurrence: None)
  Receive Date: 20241105
  Receipt Date: 20241105
  Transmission Date: 20250114
  Serious: Yes (Hospitalization)
  Sender: Public
  Company Number: None

PATIENT
  Age: 76 Year
  Sex: Female

DRUGS (1)
  1. NIVOLUMAB [Suspect]
     Active Substance: NIVOLUMAB

REACTIONS (7)
  - Rash [None]
  - Pulmonary embolism [None]
  - Hyponatraemia [None]
  - Acute kidney injury [None]
  - Blood glucose increased [None]
  - Hypertransaminasaemia [None]
  - Blood bilirubin increased [None]
